FAERS Safety Report 8995599 (Version 1)
Quarter: 2013Q1

REPORT INFORMATION
  Report Type: Spontaneous
  Country: US (occurrence: US)
  Receive Date: 20130103
  Receipt Date: 20130103
  Transmission Date: 20140127
  Serious: No
  Sender: FDA-Public Use
  Company Number: US-ABBOTT-12P-163-1011187-00

PATIENT
  Sex: Female
  Weight: 106.69 kg

DRUGS (4)
  1. SYNTHROID [Suspect]
     Indication: HYPOTHYROIDISM
     Dates: start: 2008, end: 201208
  2. SYNTHROID [Suspect]
     Dates: start: 201209
  3. SYNTHROID [Suspect]
     Indication: HYPOTHYROIDISM
     Dates: start: 201208, end: 201209
  4. GLIPIZIDE [Concomitant]
     Indication: DIABETES MELLITUS

REACTIONS (4)
  - Myalgia [Recovered/Resolved]
  - Tendon pain [Recovered/Resolved]
  - Gastrooesophageal reflux disease [Recovered/Resolved]
  - Hypothyroidism [Unknown]
